FAERS Safety Report 5379097-0 (Version None)
Quarter: 2007Q3

REPORT INFORMATION
  Report Type: 
  Country: None (occurrence: None)
  Receive Date: 20070702
  Receipt Date: 20070618
  Transmission Date: 20080115
  Serious: Yes (Hospitalization)
  Sender: FDA-Public Use
  Company Number: T200700564

PATIENT
  Age: 36 Year
  Sex: Male
  Weight: 63.5 kg

DRUGS (5)
  1. HYDROCODONE/ACETAMINOPHEN(HYDROCODONE BITARTRATE, ACETAMINOPHEN) TABLE [Suspect]
     Indication: BACK PAIN
     Dosage: 1-2 TABS EVERY 4 HOURS, ORAL
     Route: 048
     Dates: start: 19920101, end: 20030101
  2. SOMA [Suspect]
     Indication: MUSCLE SPASMS
     Dosage: 1-2 EVERY 4 HOURS, ORAL
     Route: 048
     Dates: start: 19990101, end: 20030101
  3. ATENOLOL [Concomitant]
  4. FENTANYL [Concomitant]
  5. NORCO [Concomitant]

REACTIONS (10)
  - DRUG INEFFECTIVE [None]
  - DYSARTHRIA [None]
  - DYSPNOEA [None]
  - FALL [None]
  - GAIT DISTURBANCE [None]
  - HEAD INJURY [None]
  - HYPERHIDROSIS [None]
  - HYPOAESTHESIA [None]
  - VISUAL DISTURBANCE [None]
  - WEIGHT DECREASED [None]
